FAERS Safety Report 7635122-5 (Version None)
Quarter: 2011Q3

REPORT INFORMATION
  Report Type: 
  Country: None (occurrence: None)
  Receive Date: 20110726
  Receipt Date: 20110615
  Transmission Date: 20111222
  Serious: No
  Sender: FDA-Public Use
  Company Number: PHHY2011CA53680

PATIENT
  Sex: Female
  Weight: 53.515 kg

DRUGS (1)
  1. EXTAVIA [Suspect]
     Indication: MULTIPLE SCLEROSIS
     Dosage: 8 MIU, QOD
     Route: 058

REACTIONS (4)
  - SWELLING [None]
  - INJECTION SITE SWELLING [None]
  - ARTHRALGIA [None]
  - PAIN IN EXTREMITY [None]
